FAERS Safety Report 12663136 (Version 1)
Quarter: 2016Q3

REPORT INFORMATION
  Report Type: Spontaneous
  Country: US (occurrence: US)
  Receive Date: 20160818
  Receipt Date: 20160818
  Transmission Date: 20161109
  Serious: Yes (Other)
  Sender: FDA-Public Use
  Company Number: PHEH2016US020239

PATIENT
  Age: 91 Year
  Sex: Female
  Weight: 109.3 kg

DRUGS (1)
  1. ENTRESTO [Suspect]
     Active Substance: SACUBITRIL\VALSARTAN
     Indication: LEFT VENTRICULAR FAILURE
     Dosage: 50 MG, BID
     Route: 048
     Dates: start: 20160615, end: 20160629

REACTIONS (4)
  - Blood creatinine increased [Unknown]
  - Hyperkalaemia [Recovering/Resolving]
  - Azotaemia [Unknown]
  - Bradycardia [Unknown]

NARRATIVE: CASE EVENT DATE: 20160622
